FAERS Safety Report 5600863-8 (Version None)
Quarter: 2008Q1

REPORT INFORMATION
  Report Type: 
  Country: None (occurrence: None)
  Receive Date: 20080122
  Receipt Date: 20080122
  Transmission Date: 20080703
  Serious: Yes (Life-Threatening)
  Sender: FDA-Public Use
  Company Number: None

PATIENT
  Age: 81 Year
  Sex: Male
  Weight: 86.1834 kg

DRUGS (8)
  1. LISINOPRIL [Suspect]
     Indication: BLOOD PRESSURE
     Dosage: 10 MG DAILY PO
     Route: 048
     Dates: start: 20050204, end: 20050329
  2. LISINOPRIL [Suspect]
     Indication: CARDIAC DISORDER
     Dosage: 10 MG DAILY PO
     Route: 048
     Dates: start: 20050204, end: 20050329
  3. SIMVASTATIN [Concomitant]
  4. OMEPRAZOLE [Concomitant]
  5. HUMULIN 70/30 [Concomitant]
  6. HYDROCHLOROTHIAZIDE [Concomitant]
  7. FERROUS [Concomitant]
  8. ATENOLOL [Concomitant]

REACTIONS (3)
  - ANGIOEDEMA [None]
  - HYPOAESTHESIA [None]
  - RASH [None]
